FAERS Safety Report 22305401 (Version 1)
Quarter: 2023Q2

REPORT INFORMATION
  Report Type: Spontaneous
  Country: US (occurrence: US)
  Receive Date: 20230510
  Receipt Date: 20230510
  Transmission Date: 20230722
  Serious: Yes (Other)
  Sender: FDA-Public Use
  Company Number: US-BRISTOL-MYERS SQUIBB COMPANY-2023-065311

PATIENT
  Age: 6 Decade
  Sex: Female

DRUGS (3)
  1. IPILIMUMAB [Suspect]
     Active Substance: IPILIMUMAB
     Indication: Malignant melanoma
     Dosage: FOUR INDUCTION CYCLES
  2. NIVOLUMAB [Suspect]
     Active Substance: NIVOLUMAB
     Indication: Malignant melanoma
     Dosage: FOUR INDUCTION CYCLES
  3. NIVOLUMAB [Suspect]
     Active Substance: NIVOLUMAB
     Dosage: 48 CYCLES OF MAINTENANCE NIVOLUMAB MONOTHERAPY

REACTIONS (3)
  - Pulmonary sarcoidosis [Unknown]
  - Immune-mediated lung disease [Unknown]
  - Optic neuropathy [Not Recovered/Not Resolved]
